FAERS Safety Report 5143124-6 (Version None)
Quarter: 2006Q4

REPORT INFORMATION
  Report Type: 
  Country: None (occurrence: None)
  Receive Date: 20061031
  Receipt Date: 20061031
  Transmission Date: 20070319
  Serious: Yes (Life-Threatening, Hospitalization)
  Sender: FDA-Public Use
  Company Number: None

PATIENT
  Age: 80 Year
  Sex: Female
  Weight: 90.7194 kg

DRUGS (2)
  1. LEVAQUIN [Suspect]
     Indication: FOOD ALLERGY
     Dosage: 500MG   3 TIMES A DAY   PO
     Route: 048
     Dates: start: 20061012, end: 20061018
  2. LEVAQUIN [Suspect]
     Indication: HYPERSENSITIVITY
     Dosage: 500MG   3 TIMES A DAY   PO
     Route: 048
     Dates: start: 20061012, end: 20061018

REACTIONS (14)
  - ASTHENIA [None]
  - BLISTER [None]
  - CHEILITIS [None]
  - DRUG HYPERSENSITIVITY [None]
  - DRY SKIN [None]
  - DYSPHAGIA [None]
  - HAEMOPTYSIS [None]
  - INCREASED UPPER AIRWAY SECRETION [None]
  - LIVER FUNCTION TEST ABNORMAL [None]
  - SKIN EXFOLIATION [None]
  - STOMATITIS [None]
  - THROAT LESION [None]
  - TONGUE ULCERATION [None]
  - URINARY TRACT INFECTION [None]
